FAERS Safety Report 5245252-3 (Version None)
Quarter: 2007Q1

REPORT INFORMATION
  Report Type: 
  Country: None (occurrence: None)
  Receive Date: 20070223
  Receipt Date: 20070213
  Transmission Date: 20070707
  Serious: Yes (Life-Threatening)
  Sender: FDA-Public Use
  Company Number: US-MERCK-0702USA02368

PATIENT
  Age: 49 Year
  Sex: Male

DRUGS (3)
  1. COZAAR [Suspect]
     Indication: HYPERTENSION
     Route: 048
     Dates: end: 20070101
  2. LISINOPRIL [Concomitant]
     Route: 065
     Dates: end: 20070101
  3. GLUCOPHAGE [Concomitant]
     Route: 065
     Dates: end: 20070101

REACTIONS (2)
  - RENAL FAILURE ACUTE [None]
  - RHABDOMYOLYSIS [None]
